FAERS Safety Report 7894168-2 (Version None)
Quarter: 2011Q4

REPORT INFORMATION
  Report Type: 
  Country: None (occurrence: None)
  Receive Date: 20111104
  Receipt Date: 20111031
  Transmission Date: 20120403
  Serious: Yes (Other)
  Sender: FDA-Public Use
  Company Number: US-PFIZER INC-2011136535

PATIENT
  Sex: Female
  Weight: 81 kg

DRUGS (11)
  1. PROAIR HFA [Concomitant]
     Dosage: 90 UG, FOUR TIMES A DAY, AS NEEDED
  2. VITAMIN D [Concomitant]
     Dosage: 400 IU, 1X/DAY
  3. SPIRIVA [Concomitant]
     Dosage: 18 UG, 1X/DAY
  4. ATENOLOL [Concomitant]
     Dosage: 75 MG, 2X/DAY
  5. LISINOPRIL [Concomitant]
     Dosage: 10 MG, 1X/DAY
  6. ADVAIR DISKUS 100/50 [Concomitant]
     Dosage: 250-50 MCG BID
  7. ASPIRIN [Concomitant]
     Dosage: 325 MG, 1X/DAY
  8. SIMVASTATIN [Concomitant]
     Dosage: 80 MG, 1X/DAY AT BED TIME
  9. FOSAMAX [Concomitant]
     Dosage: 70 MG, WEEKLY
  10. CHANTIX [Suspect]
     Indication: SMOKING CESSATION THERAPY
     Dosage: UNK
     Route: 048
     Dates: start: 20110625, end: 20110701
  11. HYDROCHLOROTHIAZIDE [Concomitant]
     Indication: JOINT SWELLING
     Dosage: 25 MG, ALTERNATE DAY

REACTIONS (9)
  - HEART RATE INCREASED [None]
  - TREMOR [None]
  - LOSS OF CONSCIOUSNESS [None]
  - JOINT SWELLING [None]
  - MYOCARDIAL INFARCTION [None]
  - MALAISE [None]
  - NAUSEA [None]
  - ANXIETY [None]
  - DYSPNOEA [None]
